FAERS Safety Report 7023534-2 (Version None)
Quarter: 2010Q3

REPORT INFORMATION
  Report Type: 
  Country: None (occurrence: None)
  Receive Date: 20100930
  Receipt Date: 20100930
  Transmission Date: 20110219
  Serious: Yes (Other)
  Sender: FDA-Public Use
  Company Number: None

PATIENT

DRUGS (2)
  1. URIBEL (METHENAMINE) [Suspect]
     Indication: POLLAKIURIA
  2. LEXAPRO [Suspect]

REACTIONS (3)
  - CONTRAINDICATION TO MEDICAL TREATMENT [None]
  - DRUG PRESCRIBING ERROR [None]
  - LABELLED DRUG-DRUG INTERACTION MEDICATION ERROR [None]
